FAERS Safety Report 7037626-5 (Version None)
Quarter: 2010Q4

REPORT INFORMATION
  Report Type: 
  Country: None (occurrence: None)
  Receive Date: 20101011
  Receipt Date: 20101001
  Transmission Date: 20110411
  Serious: Yes (Hospitalization)
  Sender: FDA-Public Use
  Company Number: PHHO2010US14984

PATIENT
  Sex: Female

DRUGS (2)
  1. PLACEBO COMP-PLA+ [Suspect]
     Indication: PANCREATIC NEUROENDOCRINE TUMOUR
     Dosage: UNK
  2. RAD 666 [Suspect]
     Indication: PANCREATIC NEUROENDOCRINE TUMOUR
     Dosage: 5MG
     Dates: start: 20100422, end: 20100930

REACTIONS (5)
  - COUGH [None]
  - DIZZINESS [None]
  - HYPONATRAEMIA [None]
  - NAUSEA [None]
  - PNEUMONITIS [None]
